FAERS Safety Report 11003455 (Version 2)
Quarter: 2016Q1

REPORT INFORMATION
  Report Type: Spontaneous
  Country: US (occurrence: US)
  Receive Date: 20150409
  Receipt Date: 20160210
  Transmission Date: 20160525
  Serious: Yes (Hospitalization)
  Sender: FDA-Public Use
  Company Number: US-RECORDATI RARE DISEASES-US-R13005-15-00028

PATIENT
  Age: 28 Year
  Sex: Male

DRUGS (1)
  1. METHAMPHETAMINE [Suspect]
     Active Substance: METHAMPHETAMINE
     Indication: PRODUCT USED FOR UNKNOWN INDICATION
     Route: 054

REACTIONS (4)
  - Drug abuse [Unknown]
  - Multiple organ dysfunction syndrome [Recovered/Resolved]
  - Seizure [Recovered/Resolved]
  - Toxicity to various agents [Recovered/Resolved]
